FAERS Safety Report 18267198 (Version 1)
Quarter: 2020Q3

REPORT INFORMATION
  Report Type: Spontaneous
  Country: US (occurrence: US)
  Receive Date: 20200914
  Receipt Date: 20200914
  Transmission Date: 20201103
  Serious: No
  Sender: FDA-Public Use
  Company Number: None

PATIENT
  Age: 54 Year
  Sex: Male
  Weight: 90 kg

DRUGS (16)
  1. LOPERAMIDE 2 MG [Concomitant]
     Active Substance: LOPERAMIDE
  2. QUESTRAN LIGHT 4G [Concomitant]
  3. METAMUCIL FIBER [Concomitant]
  4. FERROUS SULFATE 325MG [Concomitant]
     Active Substance: FERROUS SULFATE
  5. FUROSEMIDE 40MG [Concomitant]
     Active Substance: FUROSEMIDE
  6. LISINOPRIL 10 MG [Concomitant]
     Active Substance: LISINOPRIL
  7. OXYBUTININ 10MG [Concomitant]
  8. SPIRONOLACTONE. [Concomitant]
     Active Substance: SPIRONOLACTONE
  9. LIPITOR [Concomitant]
     Active Substance: ATORVASTATIN CALCIUM
  10. GABAPENTIN 300MG [Concomitant]
     Active Substance: GABAPENTIN
  11. METOPROLOL 100MG [Concomitant]
     Active Substance: METOPROLOL
  12. TAMSULOSIN 0.4MG [Concomitant]
     Active Substance: TAMSULOSIN
  13. ELIQUIS [Concomitant]
     Active Substance: APIXABAN
  14. LOMOTIL [Concomitant]
     Active Substance: ATROPINE SULFATE\DIPHENOXYLATE HYDROCHLORIDE
  15. ONDANSETRON 4MG [Concomitant]
     Active Substance: ONDANSETRON
  16. CAPECITABINE. [Suspect]
     Active Substance: CAPECITABINE
     Indication: RECTAL CANCER
     Route: 048
     Dates: start: 20200828

REACTIONS (2)
  - Vomiting [None]
  - Nausea [None]

NARRATIVE: CASE EVENT DATE: 20200830
